FAERS Safety Report 7182046-6 (Version None)
Quarter: 2010Q4

REPORT INFORMATION
  Report Type: 
  Country: None (occurrence: None)
  Receive Date: 20101221
  Receipt Date: 20100505
  Transmission Date: 20110411
  Serious: No
  Sender: FDA-Public Use
  Company Number: US-AMGEN-TCS410552

PATIENT

DRUGS (3)
  1. ENBREL [Suspect]
     Indication: RHEUMATOID ARTHRITIS
     Dosage: 50 MG, QWK
     Route: 058
     Dates: start: 20100301, end: 20100401
  2. FEXOFENADINE HCL [Concomitant]
     Dosage: UNK UNK, QD
  3. PREDNISONE [Concomitant]
     Dosage: 1 MG, QD
     Route: 048
     Dates: start: 20100414

REACTIONS (6)
  - COUGH [None]
  - EPISTAXIS [None]
  - JOINT INSTABILITY [None]
  - MICTURITION URGENCY [None]
  - RASH PRURITIC [None]
  - URINARY INCONTINENCE [None]
